FAERS Safety Report 11018937 (Version 2)
Quarter: 2015Q2

REPORT INFORMATION
  Report Type: Spontaneous
  Country: US (occurrence: US)
  Receive Date: 20150412
  Receipt Date: 20150525
  Transmission Date: 20150821
  Serious: Yes (Other)
  Sender: FDA-Public Use
  Company Number: US-JNJFOC-20100704222

PATIENT
  Sex: Female

DRUGS (2)
  1. LEVAQUIN [Suspect]
     Active Substance: LEVOFLOXACIN
     Indication: PRODUCT USED FOR UNKNOWN INDICATION
     Route: 048
  2. LEVAQUIN [Suspect]
     Active Substance: LEVOFLOXACIN
     Indication: CHRONIC OBSTRUCTIVE PULMONARY DISEASE
     Route: 048
     Dates: start: 20020926, end: 20050520

REACTIONS (3)
  - Tenosynovitis [Unknown]
  - Tendonitis [Unknown]
  - Tendon rupture [Unknown]

NARRATIVE: CASE EVENT DATE: 2009
